FAERS Safety Report 16057213 (Version 1)
Quarter: 2019Q1

REPORT INFORMATION
  Report Type: Spontaneous
  Country: US (occurrence: US)
  Receive Date: 20190311
  Receipt Date: 20190311
  Transmission Date: 20190418
  Serious: Yes (Hospitalization)
  Sender: FDA-Public Use
  Company Number: US-B. BRAUN MEDICAL INC.-2063807

PATIENT
  Age: 45 Year
  Sex: Male
  Weight: 130.98 kg

DRUGS (7)
  1. CEFAZOLIN FOR INJECTION USP AND DEXTROSE INJECTION USP 0264-3103-11 (N [Suspect]
     Active Substance: CEFAZOLIN
     Indication: ENDOCARDITIS
     Route: 042
     Dates: start: 20170620, end: 20170622
  2. MAXIPIME [Concomitant]
     Active Substance: CEFEPIME HYDROCHLORIDE
     Route: 042
     Dates: start: 20170612, end: 20170614
  3. TRAZODONE [Concomitant]
     Active Substance: TRAZODONE HYDROCHLORIDE
     Dates: start: 20170612
  4. LISINOPRIL. [Concomitant]
     Active Substance: LISINOPRIL
  5. ROCEPHIN [Concomitant]
     Active Substance: CEFTRIAXONE SODIUM
     Dates: start: 20170612, end: 20170612
  6. HUMULIN R [Concomitant]
     Active Substance: INSULIN HUMAN
     Route: 058
     Dates: start: 20170612, end: 20170619
  7. LEVAQUIN [Concomitant]
     Active Substance: LEVOFLOXACIN
     Route: 042
     Dates: start: 20170612, end: 20170612

REACTIONS (1)
  - Renal failure [None]

NARRATIVE: CASE EVENT DATE: 20170620
